FAERS Safety Report 18223577 (Version 2)
Quarter: 2020Q3

REPORT INFORMATION
  Report Type: Report from Study
  Country: IT (occurrence: IT)
  Receive Date: 20200902
  Receipt Date: 20200917
  Transmission Date: 20201104
  Serious: Yes (Hospitalization)
  Sender: FDA-Public Use
  Company Number: IT-PFIZER INC-2020330868

PATIENT
  Age: 68 Year
  Sex: Female
  Weight: 74.5 kg

DRUGS (2)
  1. AVELUMAB [Suspect]
     Active Substance: AVELUMAB
     Indication: OVARIAN CANCER
     Dosage: 800 MG, DAY 1 AND DAY 15 OF EACH 28 DAY CYCLE
     Route: 041
     Dates: start: 20190916, end: 20200810
  2. TALAZOPARIB. [Suspect]
     Active Substance: TALAZOPARIB
     Indication: OVARIAN CANCER
     Dosage: 0.75 MG, 1X/DAY
     Route: 048
     Dates: start: 20190916, end: 20200823

REACTIONS (1)
  - Dyspnoea [Recovered/Resolved]

NARRATIVE: CASE EVENT DATE: 20200824
